FAERS Safety Report 7204292-5 (Version None)
Quarter: 2010Q4

REPORT INFORMATION
  Report Type: 
  Country: None (occurrence: None)
  Receive Date: 20101230
  Receipt Date: 20101221
  Transmission Date: 20110411
  Serious: Yes (Hospitalization)
  Sender: FDA-Public Use
  Company Number: CA-ROCHE-749614

PATIENT
  Sex: Male
  Weight: 96 kg

DRUGS (9)
  1. TOCILIZUMAB [Suspect]
     Indication: RHEUMATOID ARTHRITIS
     Dosage: FORM: INFUSION
     Route: 042
     Dates: start: 20101027
  2. TOCILIZUMAB [Suspect]
     Route: 042
  3. HYDROCHLOROTHIAZIDE [Concomitant]
  4. APO CITALOPRAM [Concomitant]
  5. SLOW-K [Concomitant]
     Dosage: OSE: 8 MEQ
  6. APO-PREDNISONE [Concomitant]
  7. METHOTREXATE [Concomitant]
     Route: 058
  8. CRESTOR [Concomitant]
  9. APO-FOLIC [Concomitant]
     Dosage: DRUG REPORTED: APO-FOLIC ACID

REACTIONS (2)
  - CHEST PAIN [None]
  - CORONARY ARTERY BYPASS [None]
